FAERS Safety Report 17501995 (Version 1)
Quarter: 2020Q1

REPORT INFORMATION
  Report Type: Spontaneous
  Country: US (occurrence: US)
  Receive Date: 20200305
  Receipt Date: 20200305
  Transmission Date: 20200409
  Serious: Yes (Death, Hospitalization)
  Sender: FDA-Public Use
  Company Number: US-TEVA-2020-US-1193572

PATIENT
  Age: 65 Year
  Sex: Female

DRUGS (1)
  1. GEMCITABINE. [Suspect]
     Active Substance: GEMCITABINE
     Indication: BREAST CANCER METASTATIC
     Dosage: SECOND CYCLE
     Route: 065

REACTIONS (7)
  - Jaundice [Unknown]
  - Acute hepatic failure [Fatal]
  - Anaemia [Unknown]
  - Steatohepatitis [Unknown]
  - Thrombocytopenia [Fatal]
  - Encephalopathy [Fatal]
  - Renal failure [Fatal]
